FAERS Safety Report 14225471 (Version 1)
Quarter: 2017Q4

REPORT INFORMATION
  Report Type: Spontaneous
  Country: US (occurrence: US)
  Receive Date: 20171126
  Receipt Date: 20171126
  Transmission Date: 20180321
  Serious: Yes (Other)
  Sender: FDA-Public Use
  Company Number: None

PATIENT
  Age: 70 Year
  Sex: Female
  Weight: 49.05 kg

DRUGS (15)
  1. LOSARTAN. [Concomitant]
     Active Substance: LOSARTAN
  2. LEVOTHYROXINE. [Concomitant]
     Active Substance: LEVOTHYROXINE
  3. VITAMIN D3 [Concomitant]
     Active Substance: CHOLECALCIFEROL
  4. ZYRTEC [Concomitant]
     Active Substance: CETIRIZINE HYDROCHLORIDE
  5. ATORVASTATIN [Concomitant]
     Active Substance: ATORVASTATIN
  6. MAGNESIUM [Concomitant]
     Active Substance: MAGNESIUM
  7. CALCIUM [Concomitant]
     Active Substance: CALCIUM
  8. HCTZ [Concomitant]
     Active Substance: HYDROCHLOROTHIAZIDE
  9. ATIVAN [Concomitant]
     Active Substance: LORAZEPAM
  10. 02 POTASSIUM [Concomitant]
  11. FAMOTADINE [Concomitant]
  12. NADOLOL. [Concomitant]
     Active Substance: NADOLOL
  13. ASA [Concomitant]
     Active Substance: ASPIRIN
  14. PROAIR HFA [Concomitant]
     Active Substance: ALBUTEROL SULFATE
  15. TUDORZA PRESSAIR [Suspect]
     Active Substance: ACLIDINIUM BROMIDE
     Indication: CHRONIC OBSTRUCTIVE PULMONARY DISEASE
     Dosage: ?          QUANTITY:1 INHALATION(S);?
     Route: 055

REACTIONS (1)
  - Vertigo [None]

NARRATIVE: CASE EVENT DATE: 20171125
